FAERS Safety Report 11099392 (Version 2)
Quarter: 2015Q3

REPORT INFORMATION
  Report Type: Report from Study
  Country: DE (occurrence: DE)
  Receive Date: 20150508
  Receipt Date: 20150717
  Transmission Date: 20151125
  Serious: Yes (Hospitalization)
  Sender: FDA-Public Use
  Company Number: DE-BIOGENIDEC-2015BI057326

PATIENT
  Age: 53 Year
  Sex: Female

DRUGS (7)
  1. FAMPYRA [Concomitant]
     Active Substance: DALFAMPRIDINE
     Indication: GAIT DISTURBANCE
  2. THYRONAJOD [Concomitant]
     Active Substance: LEVOTHYROXINE SODIUM\POTASSIUM IODIDE
     Indication: THYROIDECTOMY
  3. METOPROLOL [Concomitant]
     Active Substance: METOPROLOL
     Indication: HYPERTENSION
  4. LYRICA [Concomitant]
     Active Substance: PREGABALIN
     Indication: MUSCLE SPASTICITY
  5. AVONEX [Suspect]
     Active Substance: INTERFERON BETA-1A
     Indication: MULTIPLE SCLEROSIS
     Route: 030
     Dates: start: 20050101, end: 20150326
  6. PANTOPRAZOLE [Concomitant]
     Active Substance: PANTOPRAZOLE SODIUM
     Indication: EPIGASTRIC DISCOMFORT
  7. AMLODIPINE [Concomitant]
     Active Substance: AMLODIPINE BESYLATE
     Indication: HYPERTENSION

REACTIONS (4)
  - Post procedural hypothyroidism [Unknown]
  - Leukopenia [Not Recovered/Not Resolved]
  - Mixed incontinence [Unknown]
  - Ovarian cancer stage II [Not Recovered/Not Resolved]

NARRATIVE: CASE EVENT DATE: 20141124
